FAERS Safety Report 6995130-4 (Version None)
Quarter: 2010Q3

REPORT INFORMATION
  Report Type: 
  Country: None (occurrence: None)
  Receive Date: 20100915
  Receipt Date: 20100902
  Transmission Date: 20110219
  Serious: Yes (Hospitalization)
  Sender: FDA-Public Use
  Company Number: UTC-001407

PATIENT
  Sex: Female

DRUGS (1)
  1. TYVASO [Suspect]
     Dosage: INHALATION (TREPROSTINIL SODIUM)
     Route: 055
     Dates: start: 20100301

REACTIONS (3)
  - CHEST DISCOMFORT [None]
  - PERICARDIAL EFFUSION [None]
  - WRONG TECHNIQUE IN DRUG USAGE PROCESS [None]
